FAERS Safety Report 9334994 (Version 1)
Quarter: 2013Q2

REPORT INFORMATION
  Report Type: Spontaneous
  Country: US (occurrence: US)
  Receive Date: 20130606
  Receipt Date: 20130606
  Transmission Date: 20140414
  Serious: No
  Sender: FDA-Public Use
  Company Number: US-AMGEN-USASP2013005762

PATIENT
  Age: 78 Year
  Sex: Female
  Weight: 61.68 kg

DRUGS (14)
  1. PROLIA [Suspect]
     Indication: OSTEOPOROSIS POSTMENOPAUSAL
     Dosage: 1 ML, ONE TIME DOSE
     Route: 058
     Dates: start: 20120925
  2. CALCITONIN [Concomitant]
     Indication: OSTEOPOROSIS POSTMENOPAUSAL
     Route: 045
  3. AMLODIPINE [Concomitant]
     Dosage: 5/40
  4. SECTRAL [Concomitant]
     Dosage: 200 MG, QD
  5. SILYBUM MARIANUM [Concomitant]
  6. SALIX ALBA [Concomitant]
     Indication: PAIN
     Dosage: UNK UNK, BID
  7. GLUCOSAMINE                        /00943602/ [Concomitant]
     Dosage: UNK UNK, QD
  8. CALCIUM [Concomitant]
  9. BIOTIN [Concomitant]
  10. COQ10                              /00517201/ [Concomitant]
  11. VITAMIN B [Concomitant]
  12. VITAMIN C                          /00008001/ [Concomitant]
  13. RESVERATROL [Concomitant]
  14. CULTURELLE [Concomitant]

REACTIONS (3)
  - Hot flush [Recovered/Resolved]
  - Diarrhoea [Recovered/Resolved]
  - Alopecia [Unknown]
